FAERS Safety Report 7466477-2 (Version None)
Quarter: 2011Q2

REPORT INFORMATION
  Report Type: 
  Country: None (occurrence: None)
  Receive Date: 20110509
  Receipt Date: 20100824
  Transmission Date: 20111010
  Serious: Yes (Hospitalization)
  Sender: FDA-Public Use
  Company Number: US-ALEXION-A201000826

PATIENT
  Sex: Female

DRUGS (7)
  1. ASPIRIN [Concomitant]
  2. AMITRIPTYLINE [Concomitant]
  3. COUMADIN [Concomitant]
  4. ISOSORBIDE DINITRATE [Concomitant]
  5. SIMVASTATIN [Concomitant]
  6. PREDNISONE [Concomitant]
  7. SOLIRIS [Suspect]
     Indication: PAROXYSMAL NOCTURNAL HAEMOGLOBINURIA
     Dosage: UNK
     Route: 042
     Dates: start: 20100211

REACTIONS (1)
  - VOMITING [None]
